FAERS Safety Report 4319906-7 (Version None)
Quarter: 2004Q1

REPORT INFORMATION
  Report Type: 
  Country: None (occurrence: None)
  Receive Date: 20040316
  Receipt Date: 20040302
  Transmission Date: 20041129
  Serious: Yes (Death, Hospitalization)
  Sender: FDA-Public Use
  Company Number: US-JNJFOC-20040202451

PATIENT
  Age: 77 Year
  Sex: Female
  Weight: 84.369 kg

DRUGS (8)
  1. DURAGESIC [Suspect]
     Indication: PAIN
     Dosage: TRANSDERMAL
     Route: 062
     Dates: end: 20031121
  2. PREMARIN [Concomitant]
  3. LANTUS [Concomitant]
  4. AMARYL [Concomitant]
  5. VASOTEC [Concomitant]
  6. CARDIZEM CD [Concomitant]
  7. COUMADIN [Concomitant]
  8. LANOXIN [Concomitant]

REACTIONS (1)
  - CEREBROVASCULAR ACCIDENT [None]
